FAERS Safety Report 22338043 (Version 1)
Quarter: 2023Q2

REPORT INFORMATION
  Report Type: Report from Study
  Country: US (occurrence: US)
  Receive Date: 20230518
  Receipt Date: 20230518
  Transmission Date: 20230722
  Serious: No
  Sender: FDA-Public Use
  Company Number: US-002147023-NVSC2023US113105

PATIENT
  Sex: Male

DRUGS (4)
  1. OXALIPLATIN [Suspect]
     Active Substance: OXALIPLATIN
     Indication: Pancreatic carcinoma metastatic
     Dosage: UNK (EVERY 2 WEEKS)
     Route: 065
     Dates: start: 202210, end: 202302
  2. IRINOTECAN [Suspect]
     Active Substance: IRINOTECAN
     Indication: Pancreatic carcinoma metastatic
     Dosage: UNK (EVERY 2 WEEKS)
     Route: 065
     Dates: start: 202210, end: 202302
  3. FLUOROURACIL [Suspect]
     Active Substance: FLUOROURACIL
     Indication: Pancreatic carcinoma metastatic
     Dosage: UNK (EVERY 2 WEEKS)
     Route: 065
     Dates: start: 202210, end: 202302
  4. LEUCOVORIN [Suspect]
     Active Substance: LEUCOVORIN
     Indication: Pancreatic carcinoma metastatic
     Dosage: UNK (EVERY 2 WEEKS)
     Route: 065
     Dates: start: 202210, end: 202302

REACTIONS (1)
  - Drug intolerance [Unknown]
